FAERS Safety Report 8608130 (Version 3)
Quarter: 2014Q2

REPORT INFORMATION
  Report Type: Spontaneous
  Country: US (occurrence: US)
  Receive Date: 20120611
  Receipt Date: 20140417
  Transmission Date: 20141212
  Serious: Yes (Hospitalization, Other)
  Sender: FDA-Public Use
  Company Number: US-ASTRAZENECA-2012SE35373

PATIENT
  Age: 65 Year
  Sex: Female
  Weight: 68 kg

DRUGS (11)
  1. NEXIUM [Suspect]
     Indication: GASTROOESOPHAGEAL REFLUX DISEASE
     Route: 048
     Dates: start: 1997, end: 2010
  2. NEXIUM [Suspect]
     Indication: GASTROOESOPHAGEAL REFLUX DISEASE
     Route: 048
     Dates: start: 20020607
  3. PRILOSEC OTC [Suspect]
     Route: 048
  4. ASPIRIN [Concomitant]
  5. LIPITOR [Concomitant]
     Indication: BLOOD CHOLESTEROL ABNORMAL
  6. LEVOTHYROXINE [Concomitant]
     Indication: THYROID DISORDER
  7. AZITHROMYCIN [Concomitant]
     Dosage: 250/500 MG
     Dates: start: 20110124
  8. LORTAB [Concomitant]
     Dosage: 250/500 MG
     Dates: start: 20110124
  9. SIMVASTATIN [Concomitant]
     Route: 048
     Dates: start: 20110130
  10. PANTOPRAZOLE [Concomitant]
     Route: 048
     Dates: start: 20110130
  11. PRILOSEC [Concomitant]
     Dates: start: 20110201

REACTIONS (11)
  - Spinal compression fracture [Unknown]
  - Thoracic vertebral fracture [Unknown]
  - Pneumonia [Unknown]
  - Dehydration [Unknown]
  - Osteoporosis [Unknown]
  - Rib fracture [Unknown]
  - Arthritis [Unknown]
  - Cataract [Unknown]
  - Chronic obstructive pulmonary disease [Unknown]
  - Osteopenia [Unknown]
  - Osteoarthritis [Unknown]
